FAERS Safety Report 4316776-8 (Version None)
Quarter: 2004Q1

REPORT INFORMATION
  Report Type: 
  Country: None (occurrence: None)
  Receive Date: 20040311
  Receipt Date: 20040227
  Transmission Date: 20041129
  Serious: Yes (Other)
  Sender: FDA-Public Use
  Company Number: US-JNJFOC-20040206448

PATIENT
  Age: 74 Year
  Sex: Female
  Weight: 63.05 kg

DRUGS (9)
  1. REMICADE [Suspect]
     Indication: RHEUMATOID ARTHRITIS
     Dosage: 3 MG/KG INTRAVENOUS
     Route: 042
     Dates: start: 20001001
  2. REMICADE [Suspect]
     Indication: RHEUMATOID ARTHRITIS
     Dosage: 3 MG/KG INTRAVENOUS
     Route: 042
     Dates: start: 20040201
  3. ACTONEL [Concomitant]
  4. SYNTHROID [Concomitant]
  5. AVANDIA [Concomitant]
  6. ZOCOR [Concomitant]
  7. ACETYLSALICYLIC ACID SRT [Concomitant]
  8. FLU VACCINE (INFLUENZA VACCINE) [Concomitant]
  9. PNEUMOVAX 23 [Concomitant]

REACTIONS (1)
  - LYMPHOMA [None]
